FAERS Safety Report 8972795 (Version 1)
Quarter: 2012Q4

REPORT INFORMATION
  Report Type: 
  Country: US (occurrence: US)
  Receive Date: 20121219
  Receipt Date: 20121219
  Transmission Date: 20130627
  Serious: Yes (Other)
  Sender: FDA-Public Use
  Company Number: US-009507513-1212USA005981

PATIENT
  Age: 21 Year
  Sex: Female

DRUGS (1)
  1. NUVARING [Suspect]
     Indication: CONTRACEPTION
     Dosage: UNK
     Route: 066

REACTIONS (8)
  - Complication of device insertion [Recovered/Resolved]
  - Suprapubic pain [Recovered/Resolved]
  - Vaginal discharge [Recovered/Resolved]
  - Micturition urgency [Recovered/Resolved]
  - Arthralgia [Recovered/Resolved]
  - Cystoscopy [Unknown]
  - Removal of foreign body [Unknown]
  - Incorrect route of drug administration [Unknown]
